FAERS Safety Report 7217996-5 (Version None)
Quarter: 2011Q1

REPORT INFORMATION
  Report Type: 
  Country: None (occurrence: None)
  Receive Date: 20110110
  Receipt Date: 20101230
  Transmission Date: 20110831
  Serious: Yes (Death, Hospitalization)
  Sender: FDA-Public Use
  Company Number: B0692570A

PATIENT
  Age: 18 Year
  Sex: Male

DRUGS (2)
  1. PHENOXYMETHYLPENICILLIN [Concomitant]
  2. LAMOTRIGINE [Suspect]
     Indication: EPILEPSY
     Route: 065

REACTIONS (12)
  - DEATH [None]
  - RASH [None]
  - TONSILLITIS [None]
  - PYREXIA [None]
  - LIVER DISORDER [None]
  - HYPERSENSITIVITY [None]
  - MULTI-ORGAN FAILURE [None]
  - INFECTION [None]
  - LYMPHOCYTOSIS [None]
  - SEPSIS [None]
  - ANAEMIA [None]
  - DYSPNOEA [None]
